FAERS Safety Report 24406684 (Version 1)
Quarter: 2024Q4

REPORT INFORMATION
  Report Type: Spontaneous
  Country: US (occurrence: US)
  Receive Date: 20241007
  Receipt Date: 20241007
  Transmission Date: 20250114
  Serious: No
  Sender: LUNDBECK
  Company Number: US-LUNDBECK-DKLU4004162

PATIENT

DRUGS (31)
  1. VYEPTI [Suspect]
     Active Substance: EPTINEZUMAB-JJMR
     Indication: Migraine
     Dosage: 100 MILLIGRAM
     Route: 041
     Dates: start: 20230905, end: 20231204
  2. VYEPTI [Suspect]
     Active Substance: EPTINEZUMAB-JJMR
     Dosage: 300 MILLIGRAM
     Route: 041
     Dates: start: 20231205, end: 20240906
  3. ALBUTEROL SULFATE [Concomitant]
     Active Substance: ALBUTEROL SULFATE
     Indication: Product used for unknown indication
  4. ATORVASTATIN [Concomitant]
     Active Substance: ATORVASTATIN
  5. BUDESONIDE [Concomitant]
     Active Substance: BUDESONIDE
  6. BUTALBITAL [Concomitant]
     Active Substance: BUTALBITAL
  7. ONDANSETRON [Concomitant]
     Active Substance: ONDANSETRON
  8. OSELTAMIVIR [Concomitant]
     Active Substance: OSELTAMIVIR
  9. OXYCODONE [Concomitant]
     Active Substance: OXYCODONE
  10. OXYCONTIN [Concomitant]
     Active Substance: OXYCODONE HYDROCHLORIDE
  11. PREDNISOLONE ACETATE [Concomitant]
     Active Substance: PREDNISOLONE ACETATE
  12. QULIPTA [Concomitant]
     Active Substance: ATOGEPANT
  13. SILODOSIN [Concomitant]
     Active Substance: SILODOSIN
  14. CARVEDILOL [Concomitant]
     Active Substance: CARVEDILOL
  15. BETAMETHASONE DIPROPIONATE\CLOTRIMAZOLE [Concomitant]
     Active Substance: BETAMETHASONE DIPROPIONATE\CLOTRIMAZOLE
  16. DESONIDE [Concomitant]
     Active Substance: DESONIDE
  17. EZETIMIBE [Concomitant]
     Active Substance: EZETIMIBE
  18. FLOVENT [Concomitant]
     Active Substance: FLUTICASONE PROPIONATE
  19. FLUOCINOLONE [Concomitant]
     Active Substance: FLUOCINOLONE
  20. HYDROCORTISONE [Concomitant]
     Active Substance: HYDROCORTISONE
  21. HYDROMORPHONE [Concomitant]
     Active Substance: HYDROMORPHONE
  22. KETOCONAZOLE [Concomitant]
     Active Substance: KETOCONAZOLE
  23. LAMOTRIGINE [Concomitant]
     Active Substance: LAMOTRIGINE
  24. LEVETIRACETAM [Concomitant]
     Active Substance: LEVETIRACETAM
  25. LISINOPRIL [Concomitant]
     Active Substance: LISINOPRIL
  26. MECLIZINE [Concomitant]
     Active Substance: MECLIZINE HYDROCHLORIDE
  27. METOPROLOL TARTRATE [Concomitant]
     Active Substance: METOPROLOL TARTRATE
  28. MYRBETRIQ [Concomitant]
     Active Substance: MIRABEGRON
  29. NALOXONE [Concomitant]
     Active Substance: NALOXONE
  30. NURTEC ODT [Concomitant]
     Active Substance: RIMEGEPANT SULFATE
  31. NYSTATIN [Concomitant]
     Active Substance: NYSTATIN

REACTIONS (1)
  - Migraine [Not Recovered/Not Resolved]
